FAERS Safety Report 15675911 (Version 2)
Quarter: 2019Q1

REPORT INFORMATION
  Report Type: Spontaneous
  Country: IT (occurrence: IT)
  Receive Date: 20181130
  Receipt Date: 20190314
  Transmission Date: 20190417
  Serious: Yes (Other)
  Sender: FDA-Public Use
  Company Number: IT-PFIZER INC-2018489671

PATIENT
  Age: 82 Year
  Sex: Male

DRUGS (1)
  1. TAZOCIN [Suspect]
     Active Substance: PIPERACILLIN SODIUM\TAZOBACTAM SODIUM
     Indication: PNEUMONITIS
     Dosage: 4.5 G, 1X/DAY
     Route: 042
     Dates: start: 20181003, end: 20181023

REACTIONS (1)
  - Angioedema [Unknown]
